FAERS Safety Report 24967523 (Version 1)
Quarter: 2025Q1

REPORT INFORMATION
  Report Type: Report from Study
  Country: US (occurrence: US)
  Receive Date: 20250214
  Receipt Date: 20250214
  Transmission Date: 20250408
  Serious: Yes (Other)
  Sender: TAKEDA
  Company Number: US-TAKEDA-2025TUS014903

PATIENT
  Sex: Female

DRUGS (2)
  1. PONATINIB [Suspect]
     Active Substance: PONATINIB
     Indication: Chronic myeloid leukaemia
     Dates: start: 20210210, end: 20240925
  2. PONATINIB [Suspect]
     Active Substance: PONATINIB

REACTIONS (2)
  - Chronic myeloid leukaemia [Unknown]
  - Drug resistance [Unknown]

NARRATIVE: CASE EVENT DATE: 20240901
